FAERS Safety Report 7241909-3 (Version None)
Quarter: 2011Q1

REPORT INFORMATION
  Report Type: 
  Country: None (occurrence: None)
  Receive Date: 20110124
  Receipt Date: 20110113
  Transmission Date: 20110831
  Serious: Yes (Hospitalization)
  Sender: FDA-Public Use
  Company Number: US-JNJFOC-20110103762

PATIENT
  Age: 52 Year
  Sex: Male
  Weight: 90.72 kg

DRUGS (1)
  1. STELARA [Suspect]
     Indication: PSORIASIS
     Route: 058

REACTIONS (3)
  - BURSITIS [None]
  - JOINT SWELLING [None]
  - UPPER RESPIRATORY TRACT INFECTION [None]
